FAERS Safety Report 7152347-6 (Version None)
Quarter: 2010Q4

REPORT INFORMATION
  Report Type: 
  Country: None (occurrence: None)
  Receive Date: 20101123
  Receipt Date: 20101108
  Transmission Date: 20110411
  Serious: Yes (Hospitalization)
  Sender: FDA-Public Use
  Company Number: 008395

PATIENT
  Sex: Female
  Weight: 82 kg

DRUGS (5)
  1. CERTOLIZUMAB PEGOL (CERTOLIZUMAB PEGOL) [Suspect]
     Indication: CROHN'S DISEASE
     Dosage: SEE IMAGE
     Dates: start: 20090821, end: 20090918
  2. MEDROL [Concomitant]
  3. DAFALGAN /00020001/ [Concomitant]
  4. MORPHINE [Concomitant]
  5. CALCI CHEW D3 /01483701/ [Concomitant]

REACTIONS (5)
  - CONDITION AGGRAVATED [None]
  - CROHN'S DISEASE [None]
  - ILEITIS [None]
  - INTESTINAL ANASTOMOSIS COMPLICATION [None]
  - INTESTINAL FISTULA [None]
